FAERS Safety Report 9223414 (Version 4)
Quarter: 2014Q1

REPORT INFORMATION
  Report Type: Spontaneous
  Country: US (occurrence: US)
  Receive Date: 20130410
  Receipt Date: 20140306
  Transmission Date: 20141002
  Serious: No
  Sender: FDA-Public Use
  Company Number: US-009507513-1304USA001397

PATIENT
  Sex: Male
  Weight: 84.81 kg

DRUGS (1)
  1. PROPECIA [Suspect]
     Indication: ANDROGENETIC ALOPECIA
     Dosage: 1 MG, UNK
     Route: 048
     Dates: start: 19950625, end: 2005

REACTIONS (10)
  - Glaucoma [Unknown]
  - Pyrexia [Unknown]
  - Lactose intolerance [Unknown]
  - Fatigue [Unknown]
  - Hypercholesterolaemia [Unknown]
  - Rectal fissure [Recovered/Resolved]
  - Stress [Unknown]
  - Depression [Unknown]
  - Urticaria [Unknown]
  - Erectile dysfunction [Not Recovered/Not Resolved]
